FAERS Safety Report 5064150-1 (Version None)
Quarter: 2006Q3

REPORT INFORMATION
  Report Type: 
  Country: None (occurrence: None)
  Receive Date: 20060728
  Receipt Date: 20050928
  Transmission Date: 20061208
  Serious: No
  Sender: FDA-Public Use
  Company Number: US-GLAXOSMITHKLINE-A0576650A

PATIENT
  Age: 3 Month
  Sex: Male

DRUGS (1)
  1. ZANTAC [Suspect]
     Indication: ILL-DEFINED DISORDER
     Dosage: .7ML UNKNOWN
     Route: 048

REACTIONS (2)
  - PHARMACEUTICAL PRODUCT COMPLAINT [None]
  - VOMITING [None]
